FAERS Safety Report 5200153-1 (Version None)
Quarter: 2006Q4

REPORT INFORMATION
  Report Type: 
  Country: None (occurrence: None)
  Receive Date: 20061016
  Receipt Date: 20060818
  Transmission Date: 20070319
  Serious: No
  Sender: FDA-Public Use
  Company Number: 2006SP003055

PATIENT
  Age: 71 Year
  Sex: Male
  Weight: 74.8435 kg

DRUGS (6)
  1. LUNESTA [Suspect]
     Indication: INSOMNIA
     Dosage: 2 MG;UNKNOWN;ORAL
     Route: 048
     Dates: start: 20060501
  2. PLAVIX [Concomitant]
  3. ATENOLOL [Concomitant]
  4. SYNTHROID [Concomitant]
  5. ATORVASTATIN CALCIUM [Concomitant]
  6. VITAMIN CAP [Concomitant]

REACTIONS (2)
  - BALANCE DISORDER [None]
  - DEPRESSION [None]
